FAERS Safety Report 24154147 (Version 1)
Quarter: 2024Q3

REPORT INFORMATION
  Report Type: Spontaneous
  Country: PH (occurrence: PH)
  Receive Date: 20240730
  Receipt Date: 20240730
  Transmission Date: 20241017
  Serious: Yes (Hospitalization, Other)
  Sender: APELLIS PHARMACEUTICALS
  Company Number: PH-APELLIS-2024-APL-0000537

PATIENT

DRUGS (1)
  1. PEGCETACOPLAN [Suspect]
     Active Substance: PEGCETACOPLAN
     Indication: Paroxysmal nocturnal haemoglobinuria
     Dosage: UNKNOWN

REACTIONS (3)
  - Infection [Unknown]
  - Paroxysmal nocturnal haemoglobinuria [Unknown]
  - Blood pressure abnormal [Unknown]
